FAERS Safety Report 14925029 (Version 2)
Quarter: 2018Q3

REPORT INFORMATION
  Report Type: Spontaneous
  Country: US (occurrence: US)
  Receive Date: 20180522
  Receipt Date: 20180703
  Transmission Date: 20181010
  Serious: No
  Sender: FDA-Public Use
  Company Number: US-009507513-1805USA006085

PATIENT
  Sex: Male

DRUGS (2)
  1. ASMANEX [Suspect]
     Active Substance: MOMETASONE FUROATE
     Dosage: 110 MCG/1 PUFF TWICE A DAY
     Route: 055
  2. ASMANEX [Suspect]
     Active Substance: MOMETASONE FUROATE
     Dosage: 110 MCG/1 PUFF TWICE A DAY
     Route: 055

REACTIONS (5)
  - No adverse event [Unknown]
  - Product quality issue [Unknown]
  - Product physical consistency issue [Unknown]
  - Poor quality device used [Unknown]
  - Incorrect dose administered [Unknown]
